FAERS Safety Report 4649463-7 (Version None)
Quarter: 2005Q2

REPORT INFORMATION
  Report Type: 
  Country: None (occurrence: None)
  Receive Date: 20050427
  Receipt Date: 20050414
  Transmission Date: 20051028
  Serious: Yes (Hospitalization, Other)
  Sender: FDA-Public Use
  Company Number: 2005054991

PATIENT
  Age: 39 Year
  Sex: Female

DRUGS (6)
  1. GEODON [Suspect]
     Indication: ILL-DEFINED DISORDER
     Dosage: 120 MG (60 MG, 2 IN 1 D)
  2. DROPERIDOL [Suspect]
     Indication: ILL-DEFINED DISORDER
  3. MORPHINE [Concomitant]
  4. TOPIRAMATE [Concomitant]
  5. VENLAFAXINE HCL [Concomitant]
  6. ALPRAZOLAM [Concomitant]

REACTIONS (13)
  - ABDOMINAL PAIN [None]
  - BLOOD MAGNESIUM DECREASED [None]
  - BLOOD POTASSIUM DECREASED [None]
  - BRADYCARDIA [None]
  - CARDIAC DISORDER [None]
  - CARDIO-RESPIRATORY ARREST [None]
  - EDENTULOUS [None]
  - ELECTROCARDIOGRAM QT CORRECTED INTERVAL PROLONGED [None]
  - ELECTROCARDIOGRAM T WAVE ABNORMAL [None]
  - NAUSEA [None]
  - TORSADE DE POINTES [None]
  - VENTRICULAR TACHYCARDIA [None]
  - VOMITING [None]
